FAERS Safety Report 10032943 (Version 1)
Quarter: 2014Q1

REPORT INFORMATION
  Report Type: Spontaneous
  Country: IT (occurrence: IT)
  Receive Date: 20140324
  Receipt Date: 20140324
  Transmission Date: 20141002
  Serious: Yes (Hospitalization)
  Sender: FDA-Public Use
  Company Number: IT-PFIZER INC-2014084359

PATIENT
  Age: 51 Year
  Sex: Female

DRUGS (1)
  1. XANAX [Suspect]
     Dosage: 3 MG, SINGLE
     Route: 048
     Dates: start: 20131203, end: 20131203

REACTIONS (2)
  - Suicide attempt [Recovering/Resolving]
  - Sopor [Recovering/Resolving]
